FAERS Safety Report 9703357 (Version 5)
Quarter: 2015Q2

REPORT INFORMATION
  Report Type: Report from Study
  Country: JP (occurrence: JP)
  Receive Date: 20131122
  Receipt Date: 20150622
  Transmission Date: 20150821
  Serious: Yes (Hospitalization)
  Sender: FDA-Public Use
  Company Number: PHHY2013JP077346

PATIENT
  Age: 32 Year
  Sex: Male

DRUGS (56)
  1. CLOZARIL [Suspect]
     Active Substance: CLOZAPINE
     Dosage: 25 MG, QD
     Route: 048
     Dates: start: 20120126, end: 20120127
  2. CLOZARIL [Suspect]
     Active Substance: CLOZAPINE
     Dosage: 50 MG, QD
     Route: 048
     Dates: start: 20120128, end: 20120130
  3. LIMAS [Suspect]
     Active Substance: LITHIUM CARBONATE
     Indication: SCHIZOPHRENIA, CATATONIC TYPE
     Dosage: 1200 MG, QD
     Route: 048
     Dates: start: 20090807, end: 20120425
  4. MAALOX ANTACID [Concomitant]
     Active Substance: ALUMINUM HYDROXIDE\DIMETHICONE\MAGNESIUM HYDROXIDE
     Indication: CONSTIPATION
     Dosage: 3.6 G, QD
     Route: 048
     Dates: start: 20111118, end: 20130306
  5. MAGNESIUM OXIDE. [Concomitant]
     Active Substance: MAGNESIUM OXIDE
     Indication: CONSTIPATION
     Dosage: 1.5 G, QD
     Route: 048
     Dates: start: 20120125, end: 20120425
  6. PANTOSIN [Concomitant]
     Active Substance: PANTETHINE
     Indication: CONSTIPATION
     Dosage: 600 MG, QD
     Route: 048
     Dates: start: 20110408, end: 20120822
  7. LEUCON [Concomitant]
     Indication: PROPHYLAXIS
     Dosage: 30 MG, QD
     Route: 048
     Dates: start: 20121129, end: 20121212
  8. CLOZARIL [Suspect]
     Active Substance: CLOZAPINE
     Dosage: 175 MG, QD
     Route: 048
     Dates: start: 20120214, end: 20120216
  9. CLOZARIL [Suspect]
     Active Substance: CLOZAPINE
     Dosage: 500 MG, QD
     Route: 048
     Dates: start: 20120309, end: 20120315
  10. CLOZARIL [Suspect]
     Active Substance: CLOZAPINE
     Dosage: 500 MG, QD
     Route: 048
     Dates: start: 20120719
  11. MAALOX ANTACID [Concomitant]
     Active Substance: ALUMINUM HYDROXIDE\DIMETHICONE\MAGNESIUM HYDROXIDE
     Dosage: 3.6 G, QD
     Route: 048
     Dates: start: 20130321
  12. PANTOSIN [Concomitant]
     Active Substance: PANTETHINE
     Dosage: 200 MG, QD
     Route: 048
     Dates: start: 20120906, end: 20120912
  13. MIYA-BM [Concomitant]
     Active Substance: CLOSTRIDIUM BUTYRICUM SPORES STRAIN M-55
     Indication: CONSTIPATION
     Dosage: 3 G, QD
     Route: 048
     Dates: start: 20121018, end: 20121031
  14. MAGMITT [Concomitant]
     Active Substance: MAGNESIUM OXIDE
     Indication: CONSTIPATION
     Dosage: 1980 MG, QD
     Route: 048
     Dates: start: 20121115, end: 20130403
  15. MAGMITT [Concomitant]
     Active Substance: MAGNESIUM OXIDE
     Dosage: 1980 MG, QD
     Route: 048
     Dates: start: 20130711, end: 20131030
  16. TOPINA [Concomitant]
     Active Substance: TOPIRAMATE
     Indication: SCHIZOPHRENIA, CATATONIC TYPE
     Dosage: 200 MG, QD
     Route: 048
     Dates: start: 20100816, end: 20120312
  17. GASMOTIN [Concomitant]
     Active Substance: MOSAPRIDE CITRATE
     Indication: GASTRITIS
     Dosage: 15 MG, QD
     Route: 048
     Dates: start: 20130613
  18. CLOZARIL [Suspect]
     Active Substance: CLOZAPINE
     Dosage: 75 MG, QD
     Route: 048
     Dates: start: 20120131, end: 20120202
  19. CLOZARIL [Suspect]
     Active Substance: CLOZAPINE
     Dosage: 100 MG, QD
     Route: 048
     Dates: start: 20120203, end: 20120206
  20. CLOZARIL [Suspect]
     Active Substance: CLOZAPINE
     Dosage: 400 MG, QD
     Route: 048
     Dates: start: 20120628, end: 20120718
  21. AMOBAN [Concomitant]
     Active Substance: ZOPICLONE
     Indication: SCHIZOPHRENIA, CATATONIC TYPE
     Dosage: 10 MG, QD
     Route: 048
     Dates: start: 20090616, end: 20120329
  22. BENZALIN [Concomitant]
     Active Substance: NITRAZEPAM
     Dosage: 2 MG, QD
     Route: 048
     Dates: start: 20120606, end: 20120616
  23. MAGLAX [Concomitant]
     Active Substance: MAGNESIUM OXIDE
     Dosage: 1980 MG, QD
     Route: 048
     Dates: start: 20130711, end: 20131211
  24. CLOZARIL [Suspect]
     Active Substance: CLOZAPINE
     Dosage: 300 MG, QD
     Route: 048
     Dates: start: 20120221, end: 20120301
  25. CLOZARIL [Suspect]
     Active Substance: CLOZAPINE
     Dosage: 400 MG, QD
     Route: 048
     Dates: start: 20120302, end: 20120308
  26. MAGNESIUM OXIDE. [Concomitant]
     Active Substance: MAGNESIUM OXIDE
     Dosage: 1.5 G, QD
     Route: 048
     Dates: start: 20120426, end: 20120725
  27. MAGNESIUM OXIDE. [Concomitant]
     Active Substance: MAGNESIUM OXIDE
     Dosage: 1 G, QD
     Route: 048
     Dates: start: 20120726, end: 20121003
  28. MAGLAX [Concomitant]
     Active Substance: MAGNESIUM OXIDE
     Dosage: 1320 MG, QD
     Route: 048
     Dates: start: 20131212, end: 20131225
  29. CLOZARIL [Suspect]
     Active Substance: CLOZAPINE
     Dosage: 125 MG, QD
     Route: 048
     Dates: start: 20120207, end: 20120209
  30. CLOZARIL [Suspect]
     Active Substance: CLOZAPINE
     Dosage: 600 MG, QD
     Route: 048
     Dates: start: 20120316, end: 20120509
  31. MIYA-BM [Concomitant]
     Active Substance: CLOSTRIDIUM BUTYRICUM SPORES STRAIN M-55
     Dosage: 3 G, QD
     Route: 048
     Dates: start: 20130627, end: 20130710
  32. MAGMITT [Concomitant]
     Active Substance: MAGNESIUM OXIDE
     Dosage: 990 MG, QD
     Route: 048
     Dates: start: 20130404, end: 20130501
  33. MAGMITT [Concomitant]
     Active Substance: MAGNESIUM OXIDE
     Dosage: 990 MG, QD
     Route: 048
     Dates: start: 20130627, end: 20130710
  34. BENZALIN [Concomitant]
     Active Substance: NITRAZEPAM
     Dosage: 5 MG, QD
     Route: 048
     Dates: start: 20120517, end: 20120605
  35. DAIKENCHUTO [Concomitant]
     Active Substance: HERBALS
     Indication: PRODUCT USED FOR UNKNOWN INDICATION
     Dosage: 7.5 G, QD
     Route: 048
     Dates: start: 20130126
  36. MAGLAX [Concomitant]
     Active Substance: MAGNESIUM OXIDE
     Dosage: 660 MG, QD
     Route: 048
     Dates: start: 20131226
  37. GANATON [Concomitant]
     Active Substance: ITOPRIDE
     Indication: GASTRITIS
     Dosage: 100 MG, UNK
     Route: 048
     Dates: start: 20130530
  38. CLOZARIL [Suspect]
     Active Substance: CLOZAPINE
     Dosage: 200 MG, QD
     Route: 048
     Dates: start: 20120217, end: 20120220
  39. AMOBANTES [Concomitant]
     Dosage: 10 MG, QD
     Route: 048
     Dates: start: 20120621, end: 20120905
  40. PANTOSIN [Concomitant]
     Active Substance: PANTETHINE
     Dosage: 300 MG, QD
     Route: 048
     Dates: start: 20120913, end: 20120917
  41. MIYA-BM [Concomitant]
     Active Substance: CLOSTRIDIUM BUTYRICUM SPORES STRAIN M-55
     Dosage: 2 G, QD
     Route: 048
     Dates: start: 20130711
  42. CLOZARIL [Suspect]
     Active Substance: CLOZAPINE
     Dosage: 500 MG, QD
     Route: 048
     Dates: start: 20120510, end: 20120627
  43. AMOBANTES [Concomitant]
     Indication: SCHIZOPHRENIA, CATATONIC TYPE
     Dosage: 10 MG, QD
     Route: 048
     Dates: start: 20120330, end: 20120506
  44. MIYA-BM [Concomitant]
     Active Substance: CLOSTRIDIUM BUTYRICUM SPORES STRAIN M-55
     Dosage: 3 G, QD
     Route: 048
     Dates: start: 20130502, end: 20130515
  45. MAGLAX [Concomitant]
     Active Substance: MAGNESIUM OXIDE
     Indication: PRODUCT USED FOR UNKNOWN INDICATION
     Dosage: 990 MG, QD
     Route: 048
     Dates: start: 20130627, end: 20130710
  46. CLOZARIL [Suspect]
     Active Substance: CLOZAPINE
     Indication: SCHIZOPHRENIA, CATATONIC TYPE
     Dosage: 12.5 MG, QD
     Route: 048
     Dates: start: 20120125, end: 20120125
  47. CLOZARIL [Suspect]
     Active Substance: CLOZAPINE
     Dosage: 150 MG, QD
     Route: 048
     Dates: start: 20120210, end: 20120213
  48. LIMAS [Suspect]
     Active Substance: LITHIUM CARBONATE
     Dosage: 400 MG, QD
     Route: 048
     Dates: start: 20120426, end: 20120912
  49. PANTOSIN [Concomitant]
     Active Substance: PANTETHINE
     Dosage: 400 MG, QD
     Route: 048
     Dates: start: 20120823, end: 20120905
  50. MIYA-BM [Concomitant]
     Active Substance: CLOSTRIDIUM BUTYRICUM SPORES STRAIN M-55
     Dosage: 6 G, QD
     Route: 048
     Dates: start: 20121101, end: 20121114
  51. MIYA-BM [Concomitant]
     Active Substance: CLOSTRIDIUM BUTYRICUM SPORES STRAIN M-55
     Dosage: 6 G, QD
     Route: 048
     Dates: start: 20130516, end: 20130626
  52. AMOXAN [Concomitant]
     Active Substance: AMOXAPINE
     Indication: SCHIZOPHRENIA, CATATONIC TYPE
     Dosage: 150 MG, QD
     Route: 048
     Dates: start: 20111227, end: 20120216
  53. BENZALIN [Concomitant]
     Active Substance: NITRAZEPAM
     Indication: SCHIZOPHRENIA, CATATONIC TYPE
     Dosage: 10 MG, QD
     Route: 048
     Dates: start: 20081226, end: 20120227
  54. ROZEREM [Concomitant]
     Active Substance: RAMELTEON
     Indication: SCHIZOPHRENIA, CATATONIC TYPE
     Dosage: 8 MG, QD
     Route: 048
     Dates: start: 20120229, end: 20120701
  55. LEUCON [Concomitant]
     Dosage: 60 MG, QD
     Route: 048
     Dates: start: 20121213
  56. EPADEL [Concomitant]
     Active Substance: ICOSAPENT
     Indication: SCHIZOPHRENIA, CATATONIC TYPE
     Dosage: 1800 MG, QD
     Route: 048
     Dates: start: 20130404

REACTIONS (22)
  - Eye movement disorder [Unknown]
  - Fall [Unknown]
  - Thirst [Recovered/Resolved]
  - Blood pressure systolic decreased [Not Recovered/Not Resolved]
  - Seizure [Recovering/Resolving]
  - Haematocrit decreased [Unknown]
  - Discomfort [Recovering/Resolving]
  - Asthenia [Recovering/Resolving]
  - Blood pressure diastolic decreased [Not Recovered/Not Resolved]
  - Red blood cell count increased [Not Recovered/Not Resolved]
  - Neutrophil percentage increased [Not Recovered/Not Resolved]
  - Hyperglycaemia [Not Recovered/Not Resolved]
  - Red blood cell count decreased [Unknown]
  - Blood pressure systolic increased [Unknown]
  - Heart rate increased [Not Recovered/Not Resolved]
  - White blood cell count increased [Not Recovered/Not Resolved]
  - Nasopharyngitis [Recovered/Resolved]
  - Somnolence [Recovering/Resolving]
  - Electroencephalogram abnormal [Unknown]
  - Musculoskeletal stiffness [Unknown]
  - Polydipsia [Not Recovered/Not Resolved]
  - Lymphocyte count decreased [Unknown]

NARRATIVE: CASE EVENT DATE: 20120214
